FAERS Safety Report 5962928-0 (Version None)
Quarter: 2008Q4

REPORT INFORMATION
  Report Type: 
  Country: None (occurrence: None)
  Receive Date: 20081121
  Receipt Date: 20081121
  Transmission Date: 20090506
  Serious: No
  Sender: FDA-Public Use
  Company Number: None

PATIENT
  Sex: Female
  Weight: 129.9 kg

DRUGS (1)
  1. HEPARIN [Suspect]
     Indication: THROMBOSIS
     Dosage: 1200 UNITS/HR
     Route: 042
     Dates: start: 20080826, end: 20080830

REACTIONS (1)
  - PLATELET COUNT DECREASED [None]
